FAERS Safety Report 12076483 (Version 6)
Quarter: 2016Q2

REPORT INFORMATION
  Report Type: Report from Study
  Country: CA (occurrence: CA)
  Receive Date: 20160215
  Receipt Date: 20160617
  Transmission Date: 20160815
  Serious: Yes (Other)
  Sender: FDA-Public Use
  Company Number: CA-ROCHE-1699450

PATIENT
  Age: 70 Year
  Sex: Female
  Weight: 69.46 kg

DRUGS (9)
  1. ROSUVASTATIN. [Concomitant]
     Active Substance: ROSUVASTATIN
  2. VITAMIN B12 [Concomitant]
     Active Substance: CYANOCOBALAMIN
  3. SYNTHROID [Concomitant]
     Active Substance: LEVOTHYROXINE SODIUM
  4. ACTEMRA [Suspect]
     Active Substance: TOCILIZUMAB
     Indication: RHEUMATOID ARTHRITIS
     Dosage: ON HOLD
     Route: 042
     Dates: start: 20150806
  5. TOVIAZ [Concomitant]
     Active Substance: FESOTERODINE FUMARATE
  6. PREGABALIN. [Concomitant]
     Active Substance: PREGABALIN
  7. EZETIMIBE. [Concomitant]
     Active Substance: EZETIMIBE
  8. OXYNEO [Concomitant]
     Active Substance: OXYCODONE
  9. LEFLUNOMIDE. [Concomitant]
     Active Substance: LEFLUNOMIDE

REACTIONS (6)
  - Ulcer [Not Recovered/Not Resolved]
  - Rheumatoid arthritis [Not Recovered/Not Resolved]
  - Skin infection [Recovered/Resolved]
  - Neurodermatitis [Recovering/Resolving]
  - Rash generalised [Recovering/Resolving]
  - Weight increased [Unknown]

NARRATIVE: CASE EVENT DATE: 201511
